FAERS Safety Report 16458538 (Version 1)
Quarter: 2019Q2

REPORT INFORMATION
  Report Type: Spontaneous
  Country: US (occurrence: US)
  Receive Date: 20190620
  Receipt Date: 20190620
  Transmission Date: 20190711
  Serious: No
  Sender: FDA-Public Use
  Company Number: US-THERAPEUTICSMD-2019TMD00414

PATIENT
  Sex: Female
  Weight: 78.01 kg

DRUGS (6)
  1. IMVEXXY [Suspect]
     Active Substance: ESTRADIOL
     Indication: UTERINE ATROPHY
     Dosage: 10 ?G, 1X/DAY FOR 1-2 WEEKS BEFORE BED
     Route: 067
     Dates: start: 201901, end: 2019
  2. VITAMIN D [Concomitant]
     Active Substance: VITAMIN D NOS
  3. VITAMIN C [Concomitant]
     Active Substance: ASCORBIC ACID
  4. IMVEXXY [Suspect]
     Active Substance: ESTRADIOL
     Indication: HYPERTONIC BLADDER
     Dosage: 10 ?G, 2X/WEEK (MONDAYS AND THURSDAYS) BEFORE BED
     Route: 067
     Dates: start: 2019, end: 20190314
  5. CALCIUM [Concomitant]
     Active Substance: CALCIUM
  6. VESICARE [Concomitant]
     Active Substance: SOLIFENACIN SUCCINATE

REACTIONS (2)
  - Off label use [Recovered/Resolved]
  - Vulvovaginal mycotic infection [Not Recovered/Not Resolved]

NARRATIVE: CASE EVENT DATE: 2019
